FAERS Safety Report 14125206 (Version 1)
Quarter: 2017Q4

REPORT INFORMATION
  Report Type: Spontaneous
  Country: US (occurrence: US)
  Receive Date: 20171025
  Receipt Date: 20171025
  Transmission Date: 20180321
  Serious: Yes (Death)
  Sender: FDA-Public Use
  Company Number: US-SA-2017SA205631

PATIENT
  Age: 20 Year
  Sex: Male
  Weight: 57 kg

DRUGS (2)
  1. DOXYLAMINE SUCCINATE. [Suspect]
     Active Substance: DOXYLAMINE SUCCINATE
     Indication: OVERDOSE
     Route: 065
  2. PYRILAMINE. [Concomitant]
     Active Substance: PYRILAMINE
     Indication: OVERDOSE

REACTIONS (2)
  - Toxicity to various agents [Fatal]
  - Completed suicide [Unknown]
